FAERS Safety Report 8067148 (Version 5)
Quarter: 2013Q1

REPORT INFORMATION
  Report Type: Report from Study
  Country: US (occurrence: US)
  Receive Date: 20110803
  Receipt Date: 20130320
  Transmission Date: 20140127
  Serious: Yes (Death, Other)
  Sender: FDA-Public Use
  Company Number: US-ALEXION-A201101144

PATIENT
  Sex: Female

DRUGS (1)
  1. SOLIRIS [Suspect]
     Indication: PAROXYSMAL NOCTURNAL HAEMOGLOBINURIA
     Dosage: UNK
     Route: 042
     Dates: start: 20110119, end: 20110706

REACTIONS (4)
  - Enterobacter sepsis [Fatal]
  - Respiratory failure [Fatal]
  - Chronic obstructive pulmonary disease [Unknown]
  - Renal failure [Unknown]
